FAERS Safety Report 9339528 (Version 2)
Quarter: 2013Q2

REPORT INFORMATION
  Report Type: Spontaneous
  Country: IE (occurrence: IE)
  Receive Date: 20130610
  Receipt Date: 20130610
  Transmission Date: 20140414
  Serious: Yes (Hospitalization)
  Sender: FDA-Public Use
  Company Number: IE-BAXTER-2013BAX016095

PATIENT
  Sex: Female

DRUGS (15)
  1. SODIUM CHLORIDE INTRAVENOUS INFUSION BP 0.9% W/V [Suspect]
     Indication: PRODUCT USED FOR UNKNOWN INDICATION
     Route: 042
  2. HEPARIN [Suspect]
     Indication: PRODUCT USED FOR UNKNOWN INDICATION
  3. SYNTHAMIN [Suspect]
     Indication: PARENTERAL NUTRITION
     Route: 065
  4. SYNTHAMIN [Suspect]
     Indication: PARENTERAL NUTRITION
  5. CERNEVIT [Suspect]
     Indication: PARENTERAL NUTRITION
  6. WATER FOR INJECTIONS PH.EUR [Suspect]
     Indication: PARENTERAL NUTRITION
  7. CLINOLEIC 20% (BAG) [Suspect]
     Indication: PARENTERAL NUTRITION
  8. SODIUM CHLORIDE AND POTASSIUM CHLORIDE [Suspect]
     Indication: PARENTERAL NUTRITION
  9. POTASSIUM CHLORIDE 15% [Suspect]
     Indication: PARENTERAL NUTRITION
     Route: 065
  10. SODIUM CHLORIDE [Suspect]
     Indication: PARENTERAL NUTRITION
     Route: 065
  11. SODIUM GLYCEROPHOSPHATE ANHYDROUS [Suspect]
     Indication: PARENTERAL NUTRITION
     Route: 065
  12. GLUCOSE [Suspect]
     Indication: PARENTERAL NUTRITION
     Route: 065
  13. CALCIUM CHLORIDE [Suspect]
     Indication: PARENTERAL NUTRITION
     Route: 065
  14. MAGNESIUM SULPHATE 50% [Suspect]
     Indication: PARENTERAL NUTRITION
     Route: 065
  15. ADDITRACE [Suspect]
     Indication: PARENTERAL NUTRITION
     Route: 065

REACTIONS (7)
  - Venous occlusion [Unknown]
  - Upper respiratory tract infection [Unknown]
  - Lower respiratory tract infection [Unknown]
  - Wheezing [Unknown]
  - Localised oedema [Unknown]
  - Oedema peripheral [Unknown]
  - Face oedema [Unknown]
